FAERS Safety Report 6312163-1 (Version None)
Quarter: 2009Q3

REPORT INFORMATION
  Report Type: 
  Country: None (occurrence: None)
  Receive Date: 20090817
  Receipt Date: 20090811
  Transmission Date: 20100115
  Serious: Yes (Death, Hospitalization, Other)
  Sender: FDA-Public Use
  Company Number: US-CELGENEUS-163-21880-07071681

PATIENT
  Sex: Male

DRUGS (1)
  1. REVLIMID [Suspect]
     Indication: MULTIPLE MYELOMA
     Route: 048
     Dates: start: 20070531, end: 20070612

REACTIONS (6)
  - ANAEMIA [None]
  - ASTHENIA [None]
  - DEATH [None]
  - DIARRHOEA [None]
  - FATIGUE [None]
  - MUSCULAR WEAKNESS [None]
